FAERS Safety Report 9632958 (Version 2)
Quarter: 2013Q4

REPORT INFORMATION
  Report Type: Report from Study
  Country: US (occurrence: US)
  Receive Date: 20131018
  Receipt Date: 20131018
  Transmission Date: 20140711
  Serious: Yes (Hospitalization)
  Sender: FDA-Public Use
  Company Number: US-ABBVIE-10P-163-0678231-00

PATIENT
  Age: 34 Year
  Sex: Female
  Weight: 68.1 kg

DRUGS (6)
  1. HUMIRA [Suspect]
     Indication: RHEUMATOID ARTHRITIS
     Dates: start: 201005
  2. HUMIRA [Suspect]
     Dates: start: 201009, end: 20130823
  3. ALEVE [Concomitant]
     Indication: ARTHRALGIA
  4. ARAVA [Concomitant]
     Indication: RHEUMATOID ARTHRITIS
  5. RELAFEN [Concomitant]
     Indication: RHEUMATOID ARTHRITIS
  6. LEXAPRO [Concomitant]
     Indication: DEPRESSION

REACTIONS (15)
  - Photophobia [Unknown]
  - Cough [Recovered/Resolved]
  - Sinusitis [Recovered/Resolved]
  - Pyrexia [Recovered/Resolved]
  - Influenza [Recovered/Resolved]
  - Laryngitis [Recovered/Resolved]
  - Injection site erythema [Recovered/Resolved]
  - Injection site papule [Recovered/Resolved]
  - Injection site warmth [Recovered/Resolved]
  - Injection site reaction [Recovered/Resolved]
  - Headache [Not Recovered/Not Resolved]
  - Chills [Unknown]
  - Pain [Unknown]
  - Paraesthesia [Unknown]
  - Hypoaesthesia [Unknown]
